FAERS Safety Report 5269125-5 (Version None)
Quarter: 2007Q1

REPORT INFORMATION
  Report Type: 
  Country: None (occurrence: None)
  Receive Date: 20070314
  Receipt Date: 20070228
  Transmission Date: 20070707
  Serious: Yes (Hospitalization)
  Sender: FDA-Public Use
  Company Number: 200603IM000193

PATIENT
  Age: 70 Year
  Sex: Female
  Weight: 104.3273 kg

DRUGS (5)
  1. INTERFERON GAMMA-1B [Suspect]
     Indication: IDIOPATHIC PULMONARY FIBROSIS
     Dosage: 200 UG, TIW, SUBCUTANEOUS
     Route: 058
     Dates: start: 20050913, end: 20060303
  2. TYLENOL [Concomitant]
  3. VOLTAREN [Concomitant]
  4. PROTONIX [Concomitant]
  5. LANSOPRAZOLE [Concomitant]

REACTIONS (7)
  - ACQUIRED OESOPHAGEAL WEB [None]
  - GASTRIC ULCER [None]
  - GASTROINTESTINAL OBSTRUCTION [None]
  - GASTROOESOPHAGEAL REFLUX DISEASE [None]
  - HIATUS HERNIA [None]
  - SYNCOPE [None]
  - UPPER GASTROINTESTINAL HAEMORRHAGE [None]
